FAERS Safety Report 5837294-1 (Version None)
Quarter: 2008Q3

REPORT INFORMATION
  Report Type: 
  Country: None (occurrence: None)
  Receive Date: 20080807
  Receipt Date: 20080729
  Transmission Date: 20090109
  Serious: Yes (Hospitalization, Other)
  Sender: FDA-Public Use
  Company Number: US-ELI_LILLY_AND_COMPANY-US200806003206

PATIENT
  Sex: Female

DRUGS (17)
  1. HUMALOG [Suspect]
     Indication: DIABETES MELLITUS
     Dosage: UNK, AS NEEDED
     Route: 058
  2. HUMALOG [Suspect]
  3. LISINOPRIL [Concomitant]
     Dosage: 20 MG, DAILY (1/D)
  4. LISINOPRIL [Concomitant]
     Dosage: 30 MG, DAILY (1/D)
     Route: 048
  5. VITAMIN TAB [Concomitant]
  6. VITAMIN B-12 [Concomitant]
     Dosage: UNK, DAILY (1/D)
  7. LEVOTHYROXINE SODIUM [Concomitant]
     Dosage: 50 MG, DAILY (1/D)
  8. MAGNESIUM SULFATE [Concomitant]
     Dosage: UNK, DAILY (1/D)
  9. SELENIUM [Concomitant]
     Dosage: 200 MG, 3/W
  10. SELENIUM [Concomitant]
     Dosage: 200 MEQ, 3/W
  11. PROGESTERONE [Concomitant]
     Dosage: 400 MG, DAILY (1/D)
  12. OMEGA-3 FATTY ACIDS [Concomitant]
     Dosage: 1200 MG, DAILY (1/D)
  13. ASPIRIN [Concomitant]
     Dosage: 325 MG, DAILY (1/D)
  14. BIAXIN [Concomitant]
     Dosage: UNK, DAILY (1/D)
  15. CALCIUM [Concomitant]
     Dosage: 500 MG, DAILY (1/D)
  16. POTASSIUM CHLORIDE [Concomitant]
  17. ZINC [Concomitant]

REACTIONS (12)
  - BLOOD GLUCOSE INCREASED [None]
  - CHEST PAIN [None]
  - DIABETIC KETOACIDOSIS [None]
  - DRUG INEFFECTIVE [None]
  - HYPERKALAEMIA [None]
  - HYPONATRAEMIA [None]
  - MUCOSAL DRYNESS [None]
  - NAUSEA [None]
  - RENAL FAILURE ACUTE [None]
  - SKIN LESION [None]
  - THIRST [None]
  - VOMITING [None]
